FAERS Safety Report 18336330 (Version 2)
Quarter: 2020Q4

REPORT INFORMATION
  Report Type: Report from Study
  Country: AU (occurrence: AU)
  Receive Date: 20201001
  Receipt Date: 20201123
  Transmission Date: 20210113
  Serious: Yes (Hospitalization)
  Sender: FDA-Public Use
  Company Number: AU-GLAXOSMITHKLINE-AU2020APC191654

PATIENT
  Sex: Male
  Weight: 82 kg

DRUGS (2)
  1. MEPOLIZUMAB [Suspect]
     Active Substance: MEPOLIZUMAB
     Dosage: 100 MG, Z, 4 WEEKLY
     Route: 058
     Dates: start: 20200924
  2. MEPOLIZUMAB [Suspect]
     Active Substance: MEPOLIZUMAB
     Indication: ASTHMA
     Dosage: 100 MG, Z, 4 WEEKLY
     Route: 058
     Dates: start: 202002

REACTIONS (2)
  - Sinus operation [Recovered/Resolved]
  - Sinusitis [Recovering/Resolving]
